FAERS Safety Report 13866235 (Version 1)
Quarter: 2017Q3

REPORT INFORMATION
  Report Type: Spontaneous
  Country: ES (occurrence: ES)
  Receive Date: 20170814
  Receipt Date: 20170814
  Transmission Date: 20171127
  Serious: Yes (Life-Threatening, Other)
  Sender: FDA-Public Use
  Company Number: ES-MYLANLABS-2017M1048793

PATIENT

DRUGS (3)
  1. CLARITROMICINA [Suspect]
     Active Substance: CLARITHROMYCIN
     Indication: HELICOBACTER INFECTION
     Dosage: 1 COMPRIMIDO CADA 8 HORAS
     Route: 048
     Dates: start: 20160801, end: 20160805
  2. LEVOFLOXACINO MYLAN 500 MG COMPRIMIDOS RECUBIERTOS CON PEL?CULA EFG [Suspect]
     Active Substance: LEVOFLOXACIN
     Indication: HELICOBACTER INFECTION
     Dosage: 1 COMPRIMIDO, 2 VECES AL DIA
     Route: 048
     Dates: start: 20160801, end: 20160805
  3. AMOXICILLIN. [Suspect]
     Active Substance: AMOXICILLIN
     Indication: HELICOBACTER INFECTION
     Dosage: 1 COMPRIMIDO CADA 8 HORAS
     Route: 048
     Dates: start: 20160801, end: 20160805

REACTIONS (14)
  - Dizziness [Recovered/Resolved]
  - Vision blurred [Recovered/Resolved]
  - Polyuria [Recovered/Resolved]
  - Hyperhidrosis [Recovered/Resolved]
  - Diarrhoea [Recovered/Resolved]
  - Rash [Recovered/Resolved]
  - Tachycardia [Recovered/Resolved]
  - Dysgeusia [Recovered/Resolved]
  - Headache [Recovered/Resolved]
  - Pruritus [Recovered/Resolved]
  - Insomnia [Recovered/Resolved]
  - Photosensitivity reaction [Recovered/Resolved]
  - Asthenia [Recovered/Resolved]
  - Tendonitis [Recovering/Resolving]

NARRATIVE: CASE EVENT DATE: 20160801
